FAERS Safety Report 24651011 (Version 1)
Quarter: 2024Q4

REPORT INFORMATION
  Report Type: Spontaneous
  Country: JP (occurrence: JP)
  Receive Date: 20241122
  Receipt Date: 20241122
  Transmission Date: 20250114
  Serious: Yes (Other)
  Sender: PHARMACOSMOS A/S
  Company Number: JP-NEBO-672545

PATIENT
  Age: 41 Year
  Sex: Female

DRUGS (1)
  1. FERRIC DERISOMALTOSE [Suspect]
     Active Substance: FERRIC DERISOMALTOSE
     Indication: Iron deficiency anaemia

REACTIONS (1)
  - Cyanosis [Recovered/Resolved]
